FAERS Safety Report 6189170-5 (Version None)
Quarter: 2009Q2

REPORT INFORMATION
  Report Type: 
  Country: None (occurrence: None)
  Receive Date: 20090513
  Receipt Date: 20090414
  Transmission Date: 20091009
  Serious: Yes (Disabling)
  Sender: FDA-Public Use
  Company Number: A0779193A

PATIENT
  Sex: Male

DRUGS (1)
  1. TREXIMET [Suspect]
     Indication: MIGRAINE
     Route: 065

REACTIONS (1)
  - CHEST PAIN [None]
